FAERS Safety Report 21899923 (Version 2)
Quarter: 2023Q1

REPORT INFORMATION
  Report Type: Spontaneous
  Country: US (occurrence: US)
  Receive Date: 20230123
  Receipt Date: 20230214
  Transmission Date: 20230418
  Serious: Yes (Other)
  Sender: FDA-Public Use
  Company Number: US-MEDEXUS PHARMA, INC.-2023MED00010

PATIENT
  Age: 58 Year
  Sex: Female
  Weight: 99.773 kg

DRUGS (7)
  1. RASUVO [Suspect]
     Active Substance: METHOTREXATE SODIUM
     Indication: Autoimmune disorder
  2. RASUVO [Suspect]
     Active Substance: METHOTREXATE SODIUM
     Indication: Autoimmune disorder
  3. RASUVO [Suspect]
     Active Substance: METHOTREXATE SODIUM
     Indication: Autoimmune disorder
     Dosage: 20 MG, 1X/WEEK ON SUNDAYS IN THIGH (LEG)
  4. TRANQUINOL [Concomitant]
     Dosage: UNK, 2X/DAY
  5. TRULICITY [Concomitant]
     Active Substance: DULAGLUTIDE
     Dosage: UNK
  6. TRESIBA [Concomitant]
     Active Substance: INSULIN DEGLUDEC
  7. UNSPECIFIED INJECTIONS [Concomitant]

REACTIONS (11)
  - Autoimmune disorder [Not Recovered/Not Resolved]
  - Injection site reaction [Unknown]
  - Swelling [Not Recovered/Not Resolved]
  - Inflammation [Not Recovered/Not Resolved]
  - Exposure via skin contact [Recovered/Resolved]
  - Product dose omission issue [Not Recovered/Not Resolved]
  - Device malfunction [Not Recovered/Not Resolved]
  - Device leakage [Recovered/Resolved]
  - Erythema [Not Recovered/Not Resolved]
  - Arthralgia [Not Recovered/Not Resolved]
  - Myalgia [Not Recovered/Not Resolved]

NARRATIVE: CASE EVENT DATE: 20230101
